FAERS Safety Report 4629953-3 (Version None)
Quarter: 2005Q2

REPORT INFORMATION
  Report Type: 
  Country: None (occurrence: None)
  Receive Date: 20050408
  Receipt Date: 20050401
  Transmission Date: 20051028
  Serious: Yes (Other)
  Sender: FDA-Public Use
  Company Number: US-BRISTOL-MYERS SQUIBB COMPANY-12918785

PATIENT
  Age: 77 Year
  Sex: Male

DRUGS (9)
  1. GLUCOPHAGE [Suspect]
     Indication: DIABETES MELLITUS
     Route: 048
  2. AVANDIA [Concomitant]
  3. ALLOPURINOL [Concomitant]
  4. ACCUPRIL [Concomitant]
  5. FOLIC ACID [Concomitant]
  6. B12 [Concomitant]
  7. VITAMIN C [Concomitant]
  8. VITAMIN A AND D [Concomitant]
  9. CALCIUM GLUCONATE [Concomitant]

REACTIONS (1)
  - ANAEMIA [None]
